FAERS Safety Report 7897567 (Version 2)
Quarter: 2014Q1

REPORT INFORMATION
  Report Type: Spontaneous
  Country: US (occurrence: None)
  Receive Date: 20110301
  Receipt Date: 20140304
  Transmission Date: 20141002
  Serious: Yes (Death)
  Sender: FDA-Public Use
  Company Number: RB-03981-2010

PATIENT
  Age: 38 Year
  Sex: Male
  Weight: 83.55 kg

DRUGS (6)
  1. SUBOXONE [Suspect]
     Indication: DRUG DEPENDENCE
     Dates: start: 20090714, end: 20090731
  2. METHADONE [Suspect]
     Indication: PRODUCT USED FOR UNKNOWN INDICATION
  3. DIVALPROEX [Concomitant]
  4. LISINOPRIL [Concomitant]
  5. OMEPRAZOLE [Concomitant]
  6. QUETIAPINE [Concomitant]

REACTIONS (3)
  - Accidental overdose [None]
  - Overdose [None]
  - Toxicity to various agents [None]
